FAERS Safety Report 9910280 (Version 1)
Quarter: 2014Q1

REPORT INFORMATION
  Report Type: Spontaneous
  Country: US (occurrence: US)
  Receive Date: 20140219
  Receipt Date: 20140219
  Transmission Date: 20141002
  Serious: No
  Sender: FDA-Public Use
  Company Number: US-BAYER-2014-019094

PATIENT
  Sex: Female

DRUGS (6)
  1. BETASERON [Suspect]
     Indication: MULTIPLE SCLEROSIS
     Dosage: UNK, QOD
     Route: 058
  2. COSOPT [Concomitant]
     Dosage: 2-0.5%OP
  3. SERTRALINE [Concomitant]
     Dosage: UNK MG, UNK
  4. OXYBUTYNIN [Concomitant]
     Dosage: UNK MG, UNK
  5. PREDNISOLONE [Concomitant]
     Dosage: 1%OP
  6. BRIMONIDINE [Concomitant]
     Dosage: UNK

REACTIONS (3)
  - Hallucination [Unknown]
  - Disturbance in attention [Unknown]
  - Balance disorder [Unknown]
